FAERS Safety Report 11120989 (Version 4)
Quarter: 2016Q4

REPORT INFORMATION
  Report Type: Report from Study
  Country: FR (occurrence: FR)
  Receive Date: 20150519
  Receipt Date: 20161229
  Transmission Date: 20170206
  Serious: Yes (Hospitalization)
  Sender: FDA-Public Use
  Company Number: FR-ROCHE-1573729

PATIENT
  Age: 59 Year
  Sex: Male
  Weight: 84 kg

DRUGS (32)
  1. ATENOLOL. [Concomitant]
     Active Substance: ATENOLOL
     Indication: HYPERTENSION
     Route: 048
     Dates: start: 1980
  2. TADENAN [Concomitant]
     Active Substance: PYGEUM
     Indication: BENIGN PROSTATIC HYPERPLASIA
     Route: 048
     Dates: start: 2010
  3. ZOXAN (FRANCE) [Concomitant]
     Indication: BENIGN PROSTATIC HYPERPLASIA
     Route: 048
     Dates: start: 2010
  4. AMYCOR [Concomitant]
     Active Substance: BIFONAZOLE
     Indication: INTERTRIGO
     Route: 061
     Dates: start: 20140318, end: 20140414
  5. SMECTA [Concomitant]
     Active Substance: MONTMORILLONITE
     Indication: VIRAL DIARRHOEA
     Route: 048
     Dates: start: 20150316
  6. PLACEBO [Suspect]
     Active Substance: UNSPECIFIED INGREDIENT
     Indication: METASTATIC MALIGNANT MELANOMA
     Dosage: MOST RECENT DOSE PRIOR TO ADVERSE EVENT IN SEP/2014
     Route: 048
     Dates: start: 20130709, end: 20150226
  7. VEMURAFENIB [Suspect]
     Active Substance: VEMURAFENIB
     Route: 048
     Dates: start: 20150228
  8. MONURIL [Concomitant]
     Active Substance: FOSFOMYCIN SODIUM
     Indication: BENIGN PROSTATIC HYPERPLASIA
     Route: 048
     Dates: start: 2012
  9. CHONDROSULF [Concomitant]
     Active Substance: CHONDROITIN SULFATE (CHICKEN)
     Indication: OSTEOARTHRITIS
     Route: 048
     Dates: start: 2009
  10. DEBRIDAT [Concomitant]
     Active Substance: TRIMEBUTINE MALEATE
     Indication: ABDOMINAL DISTENSION
     Route: 048
     Dates: start: 2007
  11. TEMESTA (FRANCE) [Concomitant]
     Active Substance: LORAZEPAM
     Indication: ANXIETY
     Route: 048
     Dates: start: 20130407
  12. LEXOMIL [Concomitant]
     Active Substance: BROMAZEPAM
     Indication: ANXIETY
     Route: 048
     Dates: start: 20130807
  13. VASELINE PURE [Concomitant]
     Active Substance: PETROLATUM
     Route: 062
     Dates: start: 20131127
  14. DEXERYL (FRANCE) [Concomitant]
     Active Substance: GLYCERIN\PARAFFIN
     Indication: XEROSIS
     Route: 061
     Dates: start: 20140805
  15. DAFLON [Concomitant]
     Active Substance: DIOSMIN\HESPERIDIN
     Indication: HAEMORRHOIDS
     Route: 048
     Dates: start: 201408
  16. PARACETAMOL CODEINE [Concomitant]
     Active Substance: ACETAMINOPHEN\CODEINE PHOSPHATE
     Dosage: INDICATION: CAPSULITIS BILATERAL
     Route: 048
     Dates: start: 20131209
  17. SMECTA [Concomitant]
     Active Substance: MONTMORILLONITE
     Indication: DIARRHOEA
     Route: 048
     Dates: start: 20140704
  18. PLACEBO [Suspect]
     Active Substance: UNSPECIFIED INGREDIENT
     Route: 048
     Dates: start: 20150228
  19. METEOSPASMYL [Concomitant]
     Active Substance: ALVERINE CITRATE\DIMETHICONE
     Indication: ABDOMINAL DISTENSION
     Route: 048
     Dates: start: 2007
  20. AKERAT (FRANCE) [Concomitant]
     Indication: DRY SKIN
     Route: 062
     Dates: start: 20130916, end: 20131029
  21. VEMURAFENIB [Suspect]
     Active Substance: VEMURAFENIB
     Indication: METASTATIC MALIGNANT MELANOMA
     Dosage: MOST RECENT DOSE PRIOR TO ADVERSE EVENT IN SEP/2014
     Route: 048
     Dates: start: 20130709, end: 20150226
  22. LIPANTHYL [Concomitant]
     Active Substance: FENOFIBRATE
     Indication: HYPERCHOLESTEROLAEMIA
     Route: 048
     Dates: start: 1985
  23. VASELINE PURE [Concomitant]
     Active Substance: PETROLATUM
     Indication: PALMOPLANTAR KERATODERMA
     Dosage: INDICATION: EROSIVE LESION OG THE PENIS
     Route: 061
     Dates: start: 20130916, end: 20131029
  24. DEXERYL (FRANCE) [Concomitant]
     Active Substance: GLYCERIN\PARAFFIN
     Indication: DRY SKIN
     Route: 062
     Dates: start: 20130916, end: 20131029
  25. NORSET [Concomitant]
     Active Substance: MIRTAZAPINE
     Indication: DEPRESSION
     Route: 048
     Dates: start: 20130417
  26. PARACETAMOL [Concomitant]
     Active Substance: ACETAMINOPHEN
     Indication: OSTEOARTHRITIS
     Route: 048
     Dates: start: 2009
  27. MIOREL (FRANCE) [Concomitant]
     Active Substance: METHOCARBAMOL
     Indication: FIBROMYALGIA
     Route: 001
     Dates: start: 2003
  28. PANTOPRAZOL [Concomitant]
     Active Substance: PANTOPRAZOLE SODIUM
     Dosage: INDICATION: GASTROPROTECTIVE
     Route: 048
     Dates: start: 2010
  29. AUGMENTIN [Concomitant]
     Active Substance: AMOXICILLIN\CLAVULANATE POTASSIUM
     Indication: BRONCHITIS
     Route: 048
     Dates: start: 201402, end: 201402
  30. DELIPROCT [Concomitant]
     Indication: HAEMORRHOIDS
     Route: 054
     Dates: start: 201408, end: 20141223
  31. HAMAMELIS [Concomitant]
     Active Substance: HAMAMELIS VIRGINIANA LEAF
     Indication: HAEMORRHOIDS
     Route: 048
     Dates: start: 201408
  32. TITANOREINE (FRANCE) [Concomitant]
     Indication: HAEMORRHOIDS
     Dosage: SELECT IF ONGOING=YES
     Route: 061
     Dates: start: 201408

REACTIONS (1)
  - Rectal polyp [Not Recovered/Not Resolved]

NARRATIVE: CASE EVENT DATE: 201409
